FAERS Safety Report 14957195 (Version 2)
Quarter: 2025Q1

REPORT INFORMATION
  Report Type: Other
  Country: CA (occurrence: CA)
  Receive Date: 20180531
  Receipt Date: 20250210
  Transmission Date: 20250408
  Serious: Yes (Other)
  Sender: APOTEX
  Company Number: CA-APOTEX-2018AP014005

PATIENT
  Age: 40 Year
  Sex: Female

DRUGS (16)
  1. MOXIFLOXACIN [Suspect]
     Active Substance: MOXIFLOXACIN
     Indication: Product used for unknown indication
     Route: 065
  2. XOLAIR [Suspect]
     Active Substance: OMALIZUMAB
     Indication: Chronic spontaneous urticaria
     Route: 058
  3. XOLAIR [Suspect]
     Active Substance: OMALIZUMAB
     Route: 058
  4. OMALIZUMAB [Suspect]
     Active Substance: OMALIZUMAB
     Indication: Chronic spontaneous urticaria
     Route: 058
  5. OMALIZUMAB [Suspect]
     Active Substance: OMALIZUMAB
     Route: 058
  6. OMALIZUMAB [Suspect]
     Active Substance: OMALIZUMAB
     Route: 058
  7. OMALIZUMAB [Suspect]
     Active Substance: OMALIZUMAB
     Route: 058
  8. OMALIZUMAB [Suspect]
     Active Substance: OMALIZUMAB
     Route: 065
  9. OMALIZUMAB [Suspect]
     Active Substance: OMALIZUMAB
     Route: 065
  10. OMALIZUMAB [Suspect]
     Active Substance: OMALIZUMAB
     Route: 058
  11. OMALIZUMAB [Suspect]
     Active Substance: OMALIZUMAB
     Route: 058
  12. CETIRIZINE [Concomitant]
     Active Substance: CETIRIZINE HYDROCHLORIDE
     Indication: Product used for unknown indication
     Dosage: 1 DF, BID
     Route: 065
  13. CETIRIZINE [Concomitant]
     Active Substance: CETIRIZINE HYDROCHLORIDE
     Dosage: 1 DOSAGE FORM, QD
     Route: 065
  14. FLOVENT [Concomitant]
     Active Substance: FLUTICASONE PROPIONATE
     Indication: Product used for unknown indication
     Route: 065
  15. VENTOLIN [Concomitant]
     Active Substance: ALBUTEROL SULFATE
     Indication: Product used for unknown indication
     Route: 065
  16. ZANTAC [Concomitant]
     Active Substance: RANITIDINE HYDROCHLORIDE
     Indication: Product used for unknown indication
     Dosage: 1 DF, BID
     Route: 065

REACTIONS (10)
  - Hypoaesthesia [Unknown]
  - Erythema [Unknown]
  - Inappropriate schedule of product administration [Unknown]
  - Product dose omission issue [Unknown]
  - Pulmonary congestion [Unknown]
  - Pruritus [Unknown]
  - Pneumonia [Unknown]
  - Rash [Unknown]
  - Urticaria [Unknown]
  - Drug hypersensitivity [Unknown]
